FAERS Safety Report 17956072 (Version 2)
Quarter: 2020Q3

REPORT INFORMATION
  Report Type: Spontaneous
  Country: US (occurrence: US)
  Receive Date: 20200629
  Receipt Date: 20200706
  Transmission Date: 20201103
  Serious: No
  Sender: FDA-Public Use
  Company Number: US-PFIZER INC-2020248109

PATIENT
  Age: 84 Year
  Sex: Male

DRUGS (1)
  1. ATORVASTATIN CALCIUM. [Suspect]
     Active Substance: ATORVASTATIN CALCIUM
     Dosage: UNK

REACTIONS (5)
  - Reaction to excipient [Unknown]
  - Movement disorder [Unknown]
  - Dizziness [Unknown]
  - Product substitution issue [Unknown]
  - Asthenia [Unknown]
